FAERS Safety Report 9346746 (Version 1)
Quarter: 2013Q2

REPORT INFORMATION
  Report Type: Spontaneous
  Country: CN (occurrence: CN)
  Receive Date: 20130613
  Receipt Date: 20130613
  Transmission Date: 20140414
  Serious: Yes (Other)
  Sender: FDA-Public Use
  Company Number: CN-BRISTOL-MYERS SQUIBB COMPANY-18979401

PATIENT
  Age: 34 Year
  Sex: Male

DRUGS (1)
  1. BARACLUDE [Suspect]
     Dosage: FROM AUG2007 FOR 1 YEAR AFTER, STOPPED IN 2008,RESTART-5JAN13
     Route: 048
     Dates: start: 200708

REACTIONS (1)
  - In vitro fertilisation [Unknown]
